FAERS Safety Report 6801049-1 (Version None)
Quarter: 2010Q2

REPORT INFORMATION
  Report Type: 
  Country: None (occurrence: None)
  Receive Date: 20100629
  Receipt Date: 20100616
  Transmission Date: 20101027
  Serious: Yes (Death)
  Sender: FDA-Public Use
  Company Number: US-ELI_LILLY_AND_COMPANY-US201006004673

PATIENT
  Sex: Male

DRUGS (2)
  1. SYMBYAX [Suspect]
     Dosage: 1 D/F, UNKNOWN
     Route: 065
     Dates: end: 20100101
  2. SYMBYAX [Suspect]
     Dosage: 1 D/F, UNKNOWN
     Route: 065
     Dates: start: 20100601

REACTIONS (2)
  - COMPLETED SUICIDE [None]
  - INTENTIONAL OVERDOSE [None]
